FAERS Safety Report 9819380 (Version 1)
Quarter: 2014Q1

REPORT INFORMATION
  Report Type: Spontaneous
  Country: PH (occurrence: PH)
  Receive Date: 20140115
  Receipt Date: 20140115
  Transmission Date: 20141002
  Serious: Yes (Death)
  Sender: FDA-Public Use
  Company Number: PH-MERCK-1401PHL004669

PATIENT
  Age: 66 Year
  Sex: Male

DRUGS (1)
  1. JANUVIA [Suspect]
     Dosage: 1 TABLET ONCE A DAY
     Route: 048
     Dates: start: 20121206

REACTIONS (1)
  - Diabetic complication [Fatal]
